FAERS Safety Report 8481539-9 (Version None)
Quarter: 2012Q3

REPORT INFORMATION
  Report Type: 
  Country: None (occurrence: None)
  Receive Date: 20120702
  Receipt Date: 20120622
  Transmission Date: 20120928
  Serious: Yes (Hospitalization)
  Sender: FDA-Public Use
  Company Number: US-BAYER-2012-002920

PATIENT
  Age: 32 Year
  Sex: Female
  Weight: 79.365 kg

DRUGS (12)
  1. ATORVASTATIN [Concomitant]
  2. LORTAB [Concomitant]
  3. LIPITOR [Concomitant]
  4. YAZ [Suspect]
     Indication: CONTRACEPTION
     Dosage: UNK
     Dates: start: 20050101
  5. YAZ [Suspect]
     Indication: PREMENSTRUAL SYNDROME
     Dosage: UNK
     Dates: start: 20070928, end: 20080101
  6. FLONASE [Concomitant]
  7. IBUPROFEN [Concomitant]
     Dosage: UNK UNK, PRN
     Dates: start: 20081001
  8. AUGMENTIN '125' [Concomitant]
     Dosage: 875 MG, EVERY 12 HOURS
     Route: 048
     Dates: start: 20081205, end: 20081214
  9. PLAVIX [Concomitant]
  10. TOPAMAX [Concomitant]
  11. YAZ [Suspect]
     Indication: MENSTRUAL CYCLE MANAGEMENT
     Dosage: UNK
     Dates: start: 20081101, end: 20081201
  12. ACETAMINOPHEN [Concomitant]
     Dosage: UNK UNK, PRN
     Dates: start: 20081205

REACTIONS (17)
  - ANGIOPATHY [None]
  - EMOTIONAL DISTRESS [None]
  - DYSARTHRIA [None]
  - HYPOAESTHESIA [None]
  - PAIN [None]
  - PARAESTHESIA [None]
  - MUSCLE TIGHTNESS [None]
  - GENERAL PHYSICAL HEALTH DETERIORATION [None]
  - CEREBROVASCULAR ACCIDENT [None]
  - CEREBRAL INFARCTION [None]
  - HEMIPARESIS [None]
  - DIZZINESS [None]
  - ANXIETY [None]
  - VIITH NERVE PARALYSIS [None]
  - MOBILITY DECREASED [None]
  - INJURY [None]
  - FEAR [None]
